FAERS Safety Report 4960276-9 (Version None)
Quarter: 2006Q2

REPORT INFORMATION
  Report Type: 
  Country: None (occurrence: None)
  Receive Date: 20060403
  Receipt Date: 20060322
  Transmission Date: 20061013
  Serious: Yes (Hospitalization)
  Sender: FDA-Public Use
  Company Number: PHEH2006US03914

PATIENT
  Age: 92 Year
  Sex: Female

DRUGS (2)
  1. EXJADE [Suspect]
  2. REVLAMID [Suspect]

REACTIONS (7)
  - DIARRHOEA [None]
  - DIZZINESS [None]
  - NAUSEA [None]
  - PULMONARY EMBOLISM [None]
  - RASH GENERALISED [None]
  - SHOCK [None]
  - VISUAL DISTURBANCE [None]
